FAERS Safety Report 7593025-9 (Version None)
Quarter: 2011Q3

REPORT INFORMATION
  Report Type: 
  Country: None (occurrence: None)
  Receive Date: 20110706
  Receipt Date: 20110628
  Transmission Date: 20111222
  Serious: Yes (Other)
  Sender: FDA-Public Use
  Company Number: NL-GLAXOSMITHKLINE-B0731052A

PATIENT
  Sex: Female
  Weight: 64 kg

DRUGS (3)
  1. BACTROBAN [Suspect]
     Indication: WOUND
     Route: 045
     Dates: start: 20110603, end: 20110607
  2. PAROXETINE HCL [Concomitant]
     Indication: PRODUCT USED FOR UNKNOWN INDICATION
     Dosage: 15MG PER DAY
     Route: 048
     Dates: start: 20070216
  3. NOSCAPECT [Suspect]
     Indication: COUGH
     Dosage: 15MG THREE TIMES PER DAY
     Route: 048
     Dates: start: 20110603, end: 20110610

REACTIONS (1)
  - ANOSMIA [None]
